FAERS Safety Report 9803017 (Version 2)
Quarter: 2014Q1

REPORT INFORMATION
  Report Type: Spontaneous
  Country: US (occurrence: None)
  Receive Date: 20140102
  Receipt Date: 20140107
  Transmission Date: 20141002
  Serious: Yes (Death, Hospitalization)
  Sender: FDA-Public Use
  Company Number: UTC-041945

PATIENT
  Age: 74 Year
  Sex: Female
  Weight: 61.4 kg

DRUGS (3)
  1. REMODULIN [Suspect]
     Indication: PULMONARY ARTERIAL HYPERTENSION
     Dosage: 14.4 UG/KG (0.01 UG/KG, 1 IN 1 MIN), SUBCUTANEOUS
     Dates: start: 20131014
  2. ADCIRCA (TADALAFIL) (UNKNOWN) [Concomitant]
  3. VENTARIS (ILOPROST) [Concomitant]

REACTIONS (2)
  - Dyspnoea [None]
  - Hypotension [None]
